FAERS Safety Report 10240813 (Version 2)
Quarter: 2014Q3

REPORT INFORMATION
  Report Type: Spontaneous
  Country: US (occurrence: US)
  Receive Date: 20140617
  Receipt Date: 20140710
  Transmission Date: 20150326
  Serious: Yes (Other)
  Sender: FDA-Public Use
  Company Number: US-SA-2014SA075559

PATIENT
  Age: 69 Year
  Sex: Male
  Weight: 113.39 kg

DRUGS (9)
  1. CARVEDILOL. [Concomitant]
     Active Substance: CARVEDILOL
     Indication: CARDIAC DISORDER
     Dosage: DAILY DOSE - 2X
  2. DIGOXIN. [Concomitant]
     Active Substance: DIGOXIN
     Indication: CARDIAC DISORDER
     Dosage: DAILY DOSE- 1X
  3. SOLOSTAR [Concomitant]
     Active Substance: DEVICE
  4. LANTUS SOLOSTAR [Suspect]
     Active Substance: INSULIN GLARGINE
     Indication: TYPE 2 DIABETES MELLITUS
     Dosage: DOSE: 130 + ML
     Route: 065
  5. CARDIOVASCULAR SYSTEM DRUGS [Concomitant]
     Active Substance: UNSPECIFIED INGREDIENT
  6. AMLODIPINE BESILATE [Concomitant]
     Active Substance: AMLODIPINE BESYLATE
     Indication: BLOOD PRESSURE
     Dosage: DAILY DOSE - 1X
  7. BYETTA [Concomitant]
     Active Substance: EXENATIDE
  8. LOSARTAN POTASSIUM. [Concomitant]
     Active Substance: LOSARTAN POTASSIUM
     Indication: CARDIAC DISORDER
     Dosage: DAILY DOSE- 2X
  9. ASPIRIN. [Concomitant]
     Active Substance: ASPIRIN
     Indication: CARDIAC DISORDER
     Dosage: DAILY DOSE-1X

REACTIONS (6)
  - Blood glucose decreased [Recovered/Resolved]
  - Skin cancer [Unknown]
  - Prostate cancer [Unknown]
  - Hyperhidrosis [Recovered/Resolved]
  - Drug administration error [Unknown]
  - Blood glucose increased [Unknown]

NARRATIVE: CASE EVENT DATE: 2004
